FAERS Safety Report 12223518 (Version 1)
Quarter: 2016Q1

REPORT INFORMATION
  Report Type: Spontaneous
  Country: US (occurrence: US)
  Receive Date: 20160330
  Receipt Date: 20160330
  Transmission Date: 20160526
  Serious: No
  Sender: FDA-Public Use
  Company Number: US-LUNDBECK-DKLU2011113

PATIENT
  Sex: Female

DRUGS (1)
  1. NORTHERA [Suspect]
     Active Substance: DROXIDOPA
     Indication: PRODUCT USED FOR UNKNOWN INDICATION
     Route: 065

REACTIONS (8)
  - Nasopharyngitis [Unknown]
  - Dyspepsia [Unknown]
  - Skin discolouration [Unknown]
  - Feeling abnormal [Unknown]
  - Diarrhoea [Unknown]
  - Restlessness [Unknown]
  - Dizziness [Unknown]
  - Blood pressure decreased [Unknown]
